FAERS Safety Report 12390373 (Version 5)
Quarter: 2017Q1

REPORT INFORMATION
  Report Type: Report from Study
  Country: CN (occurrence: CN)
  Receive Date: 20160520
  Receipt Date: 20170310
  Transmission Date: 20170428
  Serious: Yes (Hospitalization)
  Sender: FDA-Public Use
  Company Number: CN-JNJFOC-20160513008

PATIENT
  Age: 46 Year
  Sex: Female
  Weight: 53 kg

DRUGS (13)
  1. REMICADE [Suspect]
     Active Substance: INFLIXIMAB
     Indication: CROHN^S DISEASE
     Route: 042
     Dates: start: 20150122
  2. THALIDOMIDE [Concomitant]
     Active Substance: THALIDOMIDE
     Route: 048
     Dates: start: 20150514, end: 20150521
  3. REMICADE [Suspect]
     Active Substance: INFLIXIMAB
     Indication: CROHN^S DISEASE
     Route: 042
     Dates: start: 20150329
  4. REMICADE [Suspect]
     Active Substance: INFLIXIMAB
     Indication: CROHN^S DISEASE
     Route: 042
     Dates: start: 20141225
  5. CIFRAN [Concomitant]
     Active Substance: CIPROFLOXACIN
     Route: 048
     Dates: start: 201506, end: 20150625
  6. REMICADE [Suspect]
     Active Substance: INFLIXIMAB
     Indication: CROHN^S DISEASE
     Route: 042
     Dates: start: 20150623
  7. REMICADE [Suspect]
     Active Substance: INFLIXIMAB
     Indication: CROHN^S DISEASE
     Route: 042
     Dates: start: 20150727, end: 20150727
  8. REMICADE [Suspect]
     Active Substance: INFLIXIMAB
     Indication: CROHN^S DISEASE
     Route: 042
     Dates: start: 20141211
  9. LEVOFLOXACIN HYDROCHLORIDE [Concomitant]
     Active Substance: LEVOFLOXACIN HYDROCHLORIDE
     Route: 048
     Dates: start: 201508, end: 201508
  10. AZATHIOPRINUM [Concomitant]
     Active Substance: AZATHIOPRINE
     Route: 048
     Dates: start: 20150410, end: 20150514
  11. THALIDOMIDE [Concomitant]
     Active Substance: THALIDOMIDE
     Route: 048
     Dates: start: 201508, end: 201509
  12. REMICADE [Suspect]
     Active Substance: INFLIXIMAB
     Indication: CROHN^S DISEASE
     Route: 042
     Dates: start: 20150428
  13. CIFRAN [Concomitant]
     Active Substance: CIPROFLOXACIN
     Route: 048
     Dates: start: 20141217, end: 20150122

REACTIONS (2)
  - Pulmonary tuberculosis [Recovered/Resolved]
  - Lymphadenopathy [Unknown]

NARRATIVE: CASE EVENT DATE: 20150824
